FAERS Safety Report 8162371-2 (Version None)
Quarter: 2012Q1

REPORT INFORMATION
  Report Type: 
  Country: None (occurrence: None)
  Receive Date: 20120224
  Receipt Date: 20120213
  Transmission Date: 20120608
  Serious: Yes (Hospitalization, Other)
  Sender: FDA-Public Use
  Company Number: US-ELI_LILLY_AND_COMPANY-US201106000705

PATIENT
  Sex: Female
  Weight: 58.05 kg

DRUGS (2)
  1. FORTEO [Suspect]
     Indication: OSTEOPOROSIS
     Dosage: 20 UG, QD
     Route: 058
     Dates: start: 20100101, end: 20100101
  2. FORTEO [Suspect]
     Dosage: 20 UG, QD
     Route: 058
     Dates: start: 20110101, end: 20110713

REACTIONS (6)
  - HIP FRACTURE [None]
  - ADVERSE DRUG REACTION [None]
  - FALL [None]
  - QUALITY OF LIFE DECREASED [None]
  - DRUG DOSE OMISSION [None]
  - NAUSEA [None]
